FAERS Safety Report 17141787 (Version 1)
Quarter: 2019Q4

REPORT INFORMATION
  Report Type: Spontaneous
  Country: AU (occurrence: AU)
  Receive Date: 20191211
  Receipt Date: 20191211
  Transmission Date: 20200122
  Serious: Yes (Other)
  Sender: FDA-Public Use
  Company Number: AU-MYLANLABS-2019M1121841

PATIENT
  Age: 70 Year
  Sex: Female

DRUGS (1)
  1. NORDIP [Suspect]
     Active Substance: AMLODIPINE BESYLATE
     Indication: PRODUCT USED FOR UNKNOWN INDICATION
     Dosage: UNK

REACTIONS (5)
  - Hallucination [Unknown]
  - Psychotic disorder [Unknown]
  - Product substitution issue [Unknown]
  - Product availability issue [Unknown]
  - Insomnia [Unknown]
